FAERS Safety Report 9336640 (Version 2)
Quarter: 2013Q2

REPORT INFORMATION
  Report Type: Spontaneous
  Country: FR (occurrence: FR)
  Receive Date: 20130607
  Receipt Date: 20130617
  Transmission Date: 20140414
  Serious: Yes (Other)
  Sender: FDA-Public Use
  Company Number: PHHY2013FR057226

PATIENT
  Age: 37 Year
  Sex: Female
  Weight: 58 kg

DRUGS (7)
  1. GILENYA [Suspect]
     Indication: RELAPSING-REMITTING MULTIPLE SCLEROSIS
     Dosage: 1 DF, QD
     Route: 048
     Dates: start: 20121204
  2. SOLU-MEDROL [Suspect]
     Indication: MULTIPLE SCLEROSIS RELAPSE
     Dosage: 1 G, QD
     Route: 042
     Dates: start: 20121217
  3. SOLU-MEDROL [Suspect]
     Dosage: 1 G, QD
     Route: 042
     Dates: start: 20130227
  4. SOLU-MEDROL [Suspect]
     Dosage: 1 G, QD
     Route: 042
     Dates: start: 20130517
  5. ADEPAL [Suspect]
     Indication: ORAL CONTRACEPTION
     Route: 048
  6. CYMBALTA [Concomitant]
     Indication: PAIN
     Dosage: 30 MG, QD
     Route: 048
     Dates: start: 20130122
  7. CYMBALTA [Concomitant]
     Dosage: 60 MG, QD
     Route: 048

REACTIONS (1)
  - Hypertriglyceridaemia [Recovering/Resolving]
